FAERS Safety Report 8495427-5 (Version None)
Quarter: 2012Q3

REPORT INFORMATION
  Report Type: 
  Country: None (occurrence: None)
  Receive Date: 20120709
  Receipt Date: 20120621
  Transmission Date: 20120928
  Serious: No
  Sender: FDA-Public Use
  Company Number: US-ASTRAZENECA-2012SE42226

PATIENT
  Age: 37 Year
  Sex: Female
  Weight: 51.7 kg

DRUGS (9)
  1. BACLOFEN [Concomitant]
  2. MECLIZINE [Concomitant]
     Indication: VERTIGO
  3. NEXIUM [Suspect]
     Route: 048
     Dates: start: 20080502
  4. TRAMADOL HCL [Concomitant]
     Indication: BACK PAIN
  5. ADDERALL 5 [Concomitant]
  6. SEROQUEL XR [Suspect]
     Indication: BIPOLAR DISORDER
     Route: 048
     Dates: start: 20110201
  7. BUSPAR [Concomitant]
     Indication: ANXIETY
  8. HCTZ FLUID PILL [Concomitant]
  9. PHENERGAN HCL [Concomitant]

REACTIONS (11)
  - VOMITING [None]
  - GALLBLADDER DISORDER [None]
  - COUGH [None]
  - CARDIOSPASM [None]
  - VERTIGO [None]
  - LOSS OF CONSCIOUSNESS [None]
  - DYSKINESIA [None]
  - NEPHROLITHIASIS [None]
  - NAUSEA [None]
  - ABDOMINAL DISCOMFORT [None]
  - OFF LABEL USE [None]
